FAERS Safety Report 14584375 (Version 2)
Quarter: 2018Q2

REPORT INFORMATION
  Report Type: Spontaneous
  Country: IT (occurrence: IT)
  Receive Date: 20180301
  Receipt Date: 20180607
  Transmission Date: 20180711
  Serious: Yes (Other)
  Sender: FDA-Public Use
  Company Number: IT-CIPLA LTD.-2018IT07208

PATIENT

DRUGS (26)
  1. ZOLEDRONIC ACID [Suspect]
     Active Substance: ZOLEDRONIC ACID
     Indication: BREAST CANCER METASTATIC
     Dosage: 4 MG, ON DAY 1 EVERY 4 WEEKS
     Route: 065
  2. GEMCITABINE [Suspect]
     Active Substance: GEMCITABINE\GEMCITABINE HYDROCHLORIDE
     Indication: METASTASES TO BONE
  3. EXEMESTANE. [Suspect]
     Active Substance: EXEMESTANE
     Indication: METASTASES TO BONE
  4. EVEROLIMUS. [Suspect]
     Active Substance: EVEROLIMUS
     Indication: BREAST CANCER METASTATIC
     Dosage: 10 MG, PER DAY
     Route: 065
     Dates: start: 201507
  5. ZOLEDRONIC ACID [Suspect]
     Active Substance: ZOLEDRONIC ACID
     Indication: METASTASES TO BONE
     Dosage: UNK
  6. DOXORUBICIN HYDROCHLORIDE. [Suspect]
     Active Substance: DOXORUBICIN HYDROCHLORIDE
     Indication: BREAST CANCER METASTATIC
     Dosage: 60 MG/M2, ON DAY 1, TRIWEEKLY FOR SIX MONTHS
     Route: 065
  7. GEMCITABINE [Suspect]
     Active Substance: GEMCITABINE\GEMCITABINE HYDROCHLORIDE
     Indication: BREAST CANCER METASTATIC
     Dosage: 1000 MG/M2, ON DAYS 1 AND 8 TRIWEEKLY
     Route: 065
     Dates: start: 201311
  8. LETROZOLE. [Suspect]
     Active Substance: LETROZOLE
     Indication: HORMONE THERAPY
     Dosage: 2,5 MG DAILY
     Route: 065
  9. CAPECITABINE. [Suspect]
     Active Substance: CAPECITABINE
     Indication: BREAST CANCER METASTATIC
     Dosage: 1000 MG/M2, BID, ON DAYS 1-14 TRI-WEEKLY, CYCLICAL
     Route: 065
     Dates: start: 201605
  10. CYCLOPHOSPHAMIDE. [Suspect]
     Active Substance: CYCLOPHOSPHAMIDE
     Indication: BREAST CANCER METASTATIC
     Dosage: 600 MG/M2, ON DAY 1 TRIWEEKLY FOR SIX MONTHS
     Route: 065
  11. CYCLOPHOSPHAMIDE. [Suspect]
     Active Substance: CYCLOPHOSPHAMIDE
     Indication: METASTASES TO BONE
  12. DOCETAXEL. [Suspect]
     Active Substance: DOCETAXEL
     Indication: METASTASES TO BONE
  13. CAPECITABINE. [Suspect]
     Active Substance: CAPECITABINE
     Indication: METASTASES TO BONE
  14. VINORELBINE [Suspect]
     Active Substance: VINORELBINE\VINORELBINE TARTRATE
     Indication: BREAST CANCER METASTATIC
     Dosage: 60 MG/M2, ON DAYS 1 AND 8 OF THE FIRST CYCLE, CYCLICAL
     Route: 048
     Dates: start: 201605
  15. FOLINIC ACID [Suspect]
     Active Substance: LEUCOVORIN
     Indication: METASTASES TO BONE
  16. VINORELBINE [Suspect]
     Active Substance: VINORELBINE\VINORELBINE TARTRATE
     Indication: METASTASES TO BONE
     Dosage: 80 MG/M2, SUBSEQUENT CYCLES, CYCLICAL
     Route: 048
  17. FOLINIC ACID [Suspect]
     Active Substance: LEUCOVORIN
     Indication: BREAST CANCER METASTATIC
     Dosage: 100 MG/M2, DAILY
     Route: 042
     Dates: start: 201607
  18. DOXORUBICIN HYDROCHLORIDE. [Suspect]
     Active Substance: DOXORUBICIN HYDROCHLORIDE
     Indication: METASTASES TO BONE
  19. TAMOXIFEN [Suspect]
     Active Substance: TAMOXIFEN
     Indication: HORMONE THERAPY
     Dosage: 20 MG, PER DAY
     Route: 065
     Dates: start: 201207
  20. EVEROLIMUS. [Suspect]
     Active Substance: EVEROLIMUS
     Indication: METASTASES TO BONE
  21. 5-FLUOROURACIL                     /00098801/ [Suspect]
     Active Substance: FLUOROURACIL
     Indication: METASTASES TO BONE
  22. DOCETAXEL. [Suspect]
     Active Substance: DOCETAXEL
     Indication: BREAST CANCER METASTATIC
     Dosage: 75 MG/M2, ON DAY 1 TRIWEEKLY
     Route: 065
  23. PACLITAX NAB [Suspect]
     Active Substance: PACLITAXEL
     Indication: BREAST CANCER METASTATIC
     Dosage: 260 MG/M2, ON DAY 1, TRIWEEKLY
     Route: 042
     Dates: start: 201607
  24. EXEMESTANE. [Suspect]
     Active Substance: EXEMESTANE
     Indication: BREAST CANCER METASTATIC
     Dosage: 25 MG, PER DAY
     Route: 065
     Dates: start: 201507
  25. 5-FLUOROURACIL                     /00098801/ [Suspect]
     Active Substance: FLUOROURACIL
     Indication: BREAST CANCER METASTATIC
     Dosage: 1200 MG/M2 DISSOLVED IN 100 ML OF PHYSIOLOGICAL SALINE
     Dates: start: 201607
  26. PACLITAX NAB [Suspect]
     Active Substance: PACLITAXEL
     Indication: METASTASES TO BONE

REACTIONS (7)
  - Gastrointestinal pain [Unknown]
  - Malignant neoplasm progression [Unknown]
  - Metastases to liver [Recovered/Resolved]
  - Palmar-plantar erythrodysaesthesia syndrome [Unknown]
  - Toxicity to various agents [Unknown]
  - Abdominal pain [Unknown]
  - Therapy non-responder [Unknown]
